FAERS Safety Report 20881136 (Version 5)
Quarter: 2022Q3

REPORT INFORMATION
  Report Type: Report from Study
  Country: BE (occurrence: BE)
  Receive Date: 20220526
  Receipt Date: 20220726
  Transmission Date: 20221026
  Serious: Yes (Hospitalization, Other)
  Sender: FDA-Public Use
  Company Number: BE-ABBVIE-22K-013-4409301-00

PATIENT
  Sex: Male
  Weight: 80 kg

DRUGS (17)
  1. CARBIDOPA\LEVODOPA [Suspect]
     Active Substance: CARBIDOPA\LEVODOPA
     Indication: Parkinson^s disease
     Route: 050
     Dates: start: 20160118
  2. CARBIDOPA\LEVODOPA [Suspect]
     Active Substance: CARBIDOPA\LEVODOPA
     Dosage: MD 3.0 ML; CD 2.9 ML/HR DURING 16 HOURS; ED 1.5 ML; CND 2.2 ML/HR
     Route: 050
     Dates: start: 20220524, end: 20220708
  3. CARBIDOPA\LEVODOPA [Suspect]
     Active Substance: CARBIDOPA\LEVODOPA
     Dosage: MD 3.0 ML; CD 2.4 ML/HR DURING 24 HOURS; ED 1.5 ML; CND 2.4 ML/HR
     Route: 050
     Dates: start: 20220708, end: 20220720
  4. CARBIDOPA\LEVODOPA [Suspect]
     Active Substance: CARBIDOPA\LEVODOPA
     Dosage: MD 3.0 ML; CD 3.0 ML/HR DURING 24 HOURS; ED 2.0 ML; CND 2.4 ML/ HR
     Route: 050
     Dates: start: 20220720
  5. ACTRAPID [Concomitant]
     Active Substance: INSULIN HUMAN
     Indication: Product used for unknown indication
     Dosage: IN THE MORNING
  6. ACTRAPID [Concomitant]
     Active Substance: INSULIN HUMAN
     Dosage: IN THE AFTERNOON
  7. ACTRAPID [Concomitant]
     Active Substance: INSULIN HUMAN
     Dosage: AT 20.00
  8. AZILECT [Concomitant]
     Active Substance: RASAGILINE MESYLATE
     Indication: Product used for unknown indication
     Dosage: IN THE MORNING
  9. COVERAM [Concomitant]
     Active Substance: AMLODIPINE\PERINDOPRIL
     Indication: Product used for unknown indication
     Dosage: AT 8.00 HOUR
  10. LANTUS [Concomitant]
     Active Substance: INSULIN GLARGINE
     Indication: Product used for unknown indication
     Dosage: BEFORE GOING TO BED
  11. MODURETIC 5-50 [Concomitant]
     Active Substance: AMILORIDE HYDROCHLORIDE\HYDROCHLOROTHIAZIDE
     Indication: Product used for unknown indication
     Dosage: FORM STRENGTH: 5/12.5 UNKNOWN
  12. BENSERAZIDE\LEVODOPA [Concomitant]
     Active Substance: BENSERAZIDE\LEVODOPA
     Indication: Product used for unknown indication
     Dosage: WHEN GOING TO SLEEP
  13. REQUIP [Concomitant]
     Active Substance: ROPINIROLE HYDROCHLORIDE
     Indication: Product used for unknown indication
     Dosage: IN THE EVENING
  14. REQUIP [Concomitant]
     Active Substance: ROPINIROLE HYDROCHLORIDE
     Dosage: IN THE MORNING
  15. STALEVO [Concomitant]
     Active Substance: CARBIDOPA\ENTACAPONE\LEVODOPA
     Indication: Product used for unknown indication
     Dosage: WHEN NEEDED IN THE EVENING
  16. STALEVO [Concomitant]
     Active Substance: CARBIDOPA\ENTACAPONE\LEVODOPA
  17. ATORVASTATIN [Concomitant]
     Active Substance: ATORVASTATIN
     Indication: Product used for unknown indication

REACTIONS (3)
  - Lung neoplasm malignant [Not Recovered/Not Resolved]
  - Dysphagia [Unknown]
  - Therapeutic product effect incomplete [Unknown]
